FAERS Safety Report 6811160-7 (Version None)
Quarter: 2010Q2

REPORT INFORMATION
  Report Type: 
  Country: None (occurrence: None)
  Receive Date: 20100629
  Receipt Date: 20100629
  Transmission Date: 20101027
  Serious: Yes (Disabling, Other)
  Sender: FDA-Public Use
  Company Number: None

PATIENT
  Sex: Female
  Weight: 49.8957 kg

DRUGS (7)
  1. ACTONEL [Suspect]
     Indication: OSTEOPENIA
     Dosage: 35 MG 1-A-WK ORAL
     Route: 048
     Dates: start: 20090828, end: 20091201
  2. ACTONEL [Suspect]
     Indication: OSTEOPOROSIS
     Dosage: 35 MG 1-A-WK ORAL
     Route: 048
     Dates: start: 20090828, end: 20091201
  3. ACTONEL [Suspect]
  4. RISOFOS (RISEDRONATE SODIUM) 35 MG CIPLA LTD [Suspect]
     Indication: OSTEOPENIA
     Dosage: 35 MG 1-A-WK ORAL
     Route: 048
     Dates: start: 20091201, end: 20100201
  5. RISOFOS (RISEDRONATE SODIUM) 35 MG CIPLA LTD [Suspect]
     Indication: OSTEOPOROSIS
     Dosage: 35 MG 1-A-WK ORAL
     Route: 048
     Dates: start: 20091201, end: 20100201
  6. ESTROGEN AID VAGINAL CREAM [Concomitant]
  7. TYLENOL [Concomitant]

REACTIONS (20)
  - ABDOMINAL DISTENSION [None]
  - AMBLYOPIA [None]
  - ARTHRALGIA [None]
  - ASTHENIA [None]
  - DIZZINESS [None]
  - DRY EYE [None]
  - DYSPHAGIA [None]
  - ERUCTATION [None]
  - FATIGUE [None]
  - FLATULENCE [None]
  - GAIT DISTURBANCE [None]
  - MIDDLE INSOMNIA [None]
  - MUSCLE SPASMS [None]
  - MUSCULAR WEAKNESS [None]
  - MUSCULOSKELETAL CHEST PAIN [None]
  - MUSCULOSKELETAL PAIN [None]
  - NECK PAIN [None]
  - PAIN IN EXTREMITY [None]
  - SLEEP DISORDER [None]
  - THIRST [None]
